FAERS Safety Report 6267088-7 (Version None)
Quarter: 2009Q3

REPORT INFORMATION
  Report Type: 
  Country: None (occurrence: None)
  Receive Date: 20090714
  Receipt Date: 20090707
  Transmission Date: 20100115
  Serious: Yes (Other)
  Sender: FDA-Public Use
  Company Number: GB-BRISTOL-MYERS SQUIBB COMPANY-14697429

PATIENT
  Age: 51 Year
  Sex: Male

DRUGS (6)
  1. METFORMIN HCL [Suspect]
  2. REPAGLINIDE [Suspect]
  3. AMLODIPINE [Concomitant]
  4. ASPIRIN [Concomitant]
  5. INSULIN [Concomitant]
  6. VITAMIN TAB [Concomitant]

REACTIONS (4)
  - DYSARTHRIA [None]
  - ENCEPHALOPATHY [None]
  - GAIT DISTURBANCE [None]
  - MYOCLONUS [None]
